FAERS Safety Report 23853976 (Version 1)
Quarter: 2024Q2

REPORT INFORMATION
  Report Type: Spontaneous
  Country: US (occurrence: None)
  Receive Date: 20240514
  Receipt Date: 20240514
  Transmission Date: 20240716
  Serious: Yes (Other)
  Sender: FDA-Public Use
  Company Number: None

PATIENT
  Age: 47 Year
  Sex: Female

DRUGS (6)
  1. ZEPOSIA [Suspect]
     Active Substance: OZANIMOD HYDROCHLORIDE
     Indication: Colitis ulcerative
     Dosage: 0.92 MG DAILY ORAL
     Route: 048
     Dates: start: 20240418
  2. ASTEPRO [Concomitant]
     Active Substance: AZELASTINE HYDROCHLORIDE
  3. FLONASE [Concomitant]
     Active Substance: FLUTICASONE PROPIONATE
  4. VITAMINS [Concomitant]
     Active Substance: VITAMINS
  5. TYLENOL [Concomitant]
     Active Substance: ACETAMINOPHEN
  6. VITAMIN D [Concomitant]
     Active Substance: VITAMIN D NOS

REACTIONS (6)
  - Burning sensation [None]
  - Palmar erythema [None]
  - Feeling hot [None]
  - Paraesthesia [None]
  - Flatulence [None]
  - Dyspepsia [None]

NARRATIVE: CASE EVENT DATE: 20240429
